FAERS Safety Report 19890045 (Version 1)
Quarter: 2021Q3

REPORT INFORMATION
  Report Type: Spontaneous
  Country: FR (occurrence: FR)
  Receive Date: 20210928
  Receipt Date: 20210928
  Transmission Date: 20211014
  Serious: Yes (Hospitalization)
  Sender: FDA-Public Use
  Company Number: NVSC2021FR217554

PATIENT
  Age: 44 Year
  Sex: Male

DRUGS (3)
  1. COUMADINE [Interacting]
     Active Substance: WARFARIN SODIUM
     Indication: MYOCARDIAL ISCHAEMIA
     Dosage: UNK (NON RENSEIGNEE)
     Route: 048
     Dates: start: 2016, end: 20210323
  2. ROCEPHINE [Interacting]
     Active Substance: CEFTRIAXONE SODIUM
     Indication: URINARY TRACT INFECTION
     Dosage: UNK (NON RENSEIGNEE)
     Route: 042
     Dates: start: 20210323, end: 20210324
  3. OFLOXACIN. [Suspect]
     Active Substance: OFLOXACIN
     Indication: URINARY TRACT INFECTION
     Dosage: UNK (NON RENSEIGNEE)
     Route: 065
     Dates: start: 20210320, end: 20210323

REACTIONS (2)
  - International normalised ratio increased [Recovered/Resolved]
  - Haematoma [Recovered/Resolved]

NARRATIVE: CASE EVENT DATE: 20210323
